FAERS Safety Report 24000426 (Version 3)
Quarter: 2024Q3

REPORT INFORMATION
  Report Type: Spontaneous
  Country: US (occurrence: None)
  Receive Date: 20240621
  Receipt Date: 20240903
  Transmission Date: 20241016
  Serious: No
  Sender: ASTRAZENECA
  Company Number: 2024A139791

PATIENT
  Age: 63 Year
  Sex: Female

DRUGS (1)
  1. TEZSPIRE [Suspect]
     Active Substance: TEZEPELUMAB-EKKO
     Indication: Asthma
     Route: 058

REACTIONS (4)
  - Asthma [Unknown]
  - Accidental exposure to product [Unknown]
  - Device malfunction [Unknown]
  - Product administration error [Unknown]

NARRATIVE: CASE EVENT DATE: 20240619
